FAERS Safety Report 25235774 (Version 3)
Quarter: 2025Q2

REPORT INFORMATION
  Report Type: Spontaneous
  Country: DZ (occurrence: DZ)
  Receive Date: 20250424
  Receipt Date: 20250603
  Transmission Date: 20250717
  Serious: Yes (Death, Hospitalization, Other)
  Sender: BIOVITRUM
  Company Number: DZ-BIOVITRUM-2025-DZ-005694

PATIENT
  Age: 40 Day
  Sex: Female

DRUGS (1)
  1. ORFADIN [Suspect]
     Active Substance: NITISINONE
     Indication: Tyrosinaemia

REACTIONS (6)
  - Cardiac arrest neonatal [Fatal]
  - General physical health deterioration [Fatal]
  - Hepatic function abnormal [Fatal]
  - Renal tubular disorder [Unknown]
  - Respiratory distress [Unknown]
  - Hepatic failure [Unknown]
